FAERS Safety Report 10060342 (Version 1)
Quarter: 2014Q2

REPORT INFORMATION
  Report Type: Spontaneous
  Country: US (occurrence: US)
  Receive Date: 20140404
  Receipt Date: 20140404
  Transmission Date: 20141212
  Serious: Yes (Death, Hospitalization, Other)
  Sender: FDA-Public Use
  Company Number: US-GILEAD-2014-0093827

PATIENT
  Age: 52 Year
  Sex: Male

DRUGS (9)
  1. TENOFOVIR DISOPROXIL FUMARATE [Suspect]
     Indication: HIV INFECTION
     Dosage: UNK
     Route: 065
  2. TENOFOVIR DISOPROXIL FUMARATE [Suspect]
     Indication: HEPATITIS B
     Dosage: UNK
     Route: 065
  3. LOPINAVIR + RITONAVIR [Concomitant]
     Indication: HIV INFECTION
     Route: 065
  4. LOPINAVIR + RITONAVIR [Concomitant]
     Indication: HEPATITIS B
  5. LAMIVUDINE [Concomitant]
     Indication: HIV INFECTION
     Route: 065
  6. LAMIVUDINE [Concomitant]
     Indication: HEPATITIS B
  7. RALTEGRAVIR [Concomitant]
     Indication: HIV INFECTION
     Route: 065
  8. RALTEGRAVIR [Concomitant]
     Indication: HEPATITIS B
  9. ENTECAVIR [Concomitant]
     Indication: HEPATITIS B
     Dosage: UNK
     Route: 065

REACTIONS (3)
  - Hepatitis B [Fatal]
  - Hepatic failure [Fatal]
  - Renal failure acute [Unknown]
